FAERS Safety Report 4509016-8 (Version None)
Quarter: 2004Q4

REPORT INFORMATION
  Report Type: 
  Country: None (occurrence: None)
  Receive Date: 20041122
  Receipt Date: 20041122
  Transmission Date: 20050328
  Serious: Yes (Life-Threatening, Hospitalization, Disabling)
  Sender: FDA-Public Use
  Company Number: None

PATIENT
  Age: 47 Year
  Sex: Male
  Weight: 67.6 kg

DRUGS (2)
  1. ALTEPLASE [Suspect]
     Indication: CATHETER RELATED COMPLICATION
     Dosage: 2MG  TWICE  INTRAVENOUS
     Route: 042
     Dates: start: 20031231, end: 20031231
  2. WARFARIN [Suspect]
     Indication: PERIPHERAL VASCULAR DISORDER

REACTIONS (2)
  - ANOXIC ENCEPHALOPATHY [None]
  - RETROPERITONEAL HAEMORRHAGE [None]
